FAERS Safety Report 8647794 (Version 2)
Quarter: 2014Q2

REPORT INFORMATION
  Report Type: Report from Study
  Country: BR (occurrence: BR)
  Receive Date: 20120703
  Receipt Date: 20140408
  Transmission Date: 20141212
  Serious: Yes (Other)
  Sender: FDA-Public Use
  Company Number: BR-ROCHE-1082001

PATIENT
  Age: 65 Year
  Sex: Female
  Weight: 50 kg

DRUGS (9)
  1. MABTHERA [Suspect]
     Indication: RHEUMATOID ARTHRITIS
     Route: 042
     Dates: start: 20090701
  2. MABTHERA [Suspect]
     Route: 042
     Dates: start: 201108
  3. MABTHERA [Suspect]
     Route: 042
     Dates: start: 201104
  4. MABTHERA [Suspect]
     Dosage: MOST RECENT DOSE ON 27/MAR/2014
     Route: 042
     Dates: start: 201201
  5. METHOTREXATE [Concomitant]
     Route: 065
  6. TIMOPTOL [Concomitant]
     Indication: GLAUCOMA
     Route: 047
  7. LACRIMA PLUS [Concomitant]
     Indication: GLAUCOMA
     Route: 047
  8. TYLENOL [Concomitant]
     Indication: PREMEDICATION
  9. OVESTRION [Concomitant]
     Route: 065

REACTIONS (4)
  - Upper limb fracture [Recovering/Resolving]
  - Fall [Unknown]
  - Nasopharyngitis [Recovered/Resolved]
  - Dyspnoea [Recovered/Resolved]
